FAERS Safety Report 5885852-0 (Version None)
Quarter: 2008Q3

REPORT INFORMATION
  Report Type: 
  Country: None (occurrence: None)
  Receive Date: 20080917
  Receipt Date: 20080905
  Transmission Date: 20090109
  Serious: Yes (Death, Life-Threatening, Hospitalization)
  Sender: FDA-Public Use
  Company Number: NL-JNJFOC-20080901294

PATIENT
  Sex: Male

DRUGS (13)
  1. INFLIXIMAB [Suspect]
     Route: 042
  2. INFLIXIMAB [Suspect]
     Route: 042
  3. INFLIXIMAB [Suspect]
     Indication: CROHN'S DISEASE
     Route: 042
  4. PENTASA [Concomitant]
     Indication: CROHN'S DISEASE
  5. PREDNISOLON [Concomitant]
     Indication: CROHN'S DISEASE
  6. CAPECITABINE [Concomitant]
  7. NEXIUM [Concomitant]
  8. OXYNORM [Concomitant]
  9. KYTRIL [Concomitant]
  10. OXYCONTIN [Concomitant]
  11. FENTANYL [Concomitant]
  12. MOVICOLON [Concomitant]
  13. LACTULOSE [Concomitant]

REACTIONS (2)
  - COLON CANCER METASTATIC [None]
  - RECTAL CANCER [None]
